FAERS Safety Report 25376274 (Version 1)
Quarter: 2025Q2

REPORT INFORMATION
  Report Type: Spontaneous
  Country: US (occurrence: US)
  Receive Date: 20250529
  Receipt Date: 20250529
  Transmission Date: 20250717
  Serious: Yes (Other)
  Sender: SK LIFE SCIENCE
  Company Number: US-SK LIFE SCIENCE, INC-SKPVG-2025-001076

PATIENT

DRUGS (2)
  1. XCOPRI [Suspect]
     Active Substance: CENOBAMATE
     Indication: Epilepsy
     Route: 065
     Dates: start: 20250424
  2. XCOPRI [Suspect]
     Active Substance: CENOBAMATE
     Dosage: 25MG, DAILY
     Route: 065
     Dates: end: 20250521

REACTIONS (1)
  - Loss of consciousness [Not Recovered/Not Resolved]
